FAERS Safety Report 8087502-4 (Version None)
Quarter: 2012Q1

REPORT INFORMATION
  Report Type: 
  Country: None (occurrence: None)
  Receive Date: 20120128
  Receipt Date: 20110502
  Transmission Date: 20120608
  Serious: No
  Sender: FDA-Public Use
  Company Number: US-ABBOTT-11P-163-0722993-00

PATIENT
  Sex: Female
  Weight: 79.45 kg

DRUGS (7)
  1. XALATAN [Concomitant]
     Indication: ASTIGMATISM
  2. XALATAN [Concomitant]
     Indication: GLAUCOMA
  3. HUMIRA [Suspect]
     Indication: PSORIATIC ARTHROPATHY
     Dates: start: 20100101
  4. ACETAMINOPHEN [Concomitant]
     Indication: PAIN
  5. NORVASC [Concomitant]
     Indication: HYPERTENSION
  6. TRAMADOL HCL [Concomitant]
     Indication: PAIN
  7. MULTI-VITAMIN [Concomitant]
     Indication: VITAMIN SUPPLEMENTATION

REACTIONS (3)
  - MUSCULOSKELETAL PAIN [None]
  - PARAESTHESIA [None]
  - BREAST DISCOMFORT [None]
